FAERS Safety Report 5783168-4 (Version None)
Quarter: 2008Q2

REPORT INFORMATION
  Report Type: 
  Country: None (occurrence: None)
  Receive Date: 20080619
  Receipt Date: 20080609
  Transmission Date: 20081010
  Serious: Yes (Life-Threatening, Hospitalization)
  Sender: FDA-Public Use
  Company Number: CERZ-1000225

PATIENT
  Age: 20 Month
  Sex: Female
  Weight: 6 kg

DRUGS (7)
  1. CEREZYME [Suspect]
     Indication: GAUCHER'S DISEASE
     Dosage: 123 U, Q2W, INTRAVENOUS
     Route: 042
     Dates: start: 20071101
  2. VALPROATE SODIUM [Concomitant]
  3. CLOBAZAM (CLOBAZAM) [Concomitant]
  4. ZONISAMIDE [Concomitant]
  5. DANTROLENE SODIUM (SANTROLENE SODIUM) [Concomitant]
  6. TRICHORETHYL PHOSPHATE SODIUM [Concomitant]
  7. CARBOCISTEINE (CARBOCISTEINE) [Concomitant]

REACTIONS (12)
  - CARDIAC FAILURE [None]
  - CARDIO-RESPIRATORY ARREST [None]
  - CATHETER RELATED INFECTION [None]
  - CONDITION AGGRAVATED [None]
  - CONVULSION [None]
  - HEPATOMEGALY [None]
  - INFECTION [None]
  - PANCYTOPENIA [None]
  - RESPIRATORY FAILURE [None]
  - RIGHT VENTRICULAR FAILURE [None]
  - SEPSIS [None]
  - SHOCK [None]
